FAERS Safety Report 18870046 (Version 1)
Quarter: 2021Q1

REPORT INFORMATION
  Report Type: Other
  Country: US (occurrence: US)
  Receive Date: 20210209
  Receipt Date: 20210209
  Transmission Date: 20210420
  Serious: Yes (Congenital Anomaly, Other)
  Sender: FDA-Public Use
  Company Number: US-AMAG PHARMACEUTICALS, INC.-AMAG202100307

PATIENT
  Age: 0 Year
  Sex: Female
  Weight: 1.73 kg

DRUGS (1)
  1. MAKENA [Suspect]
     Active Substance: HYDROXYPROGESTERONE CAPROATE
     Indication: FOETAL EXPOSURE DURING PREGNANCY
     Route: 064
     Dates: start: 20200917, end: 20201125

REACTIONS (2)
  - Neoplasm [Unknown]
  - Premature baby [Unknown]

NARRATIVE: CASE EVENT DATE: 2020
